FAERS Safety Report 4390520-0 (Version None)
Quarter: 2004Q2

REPORT INFORMATION
  Report Type: 
  Country: None (occurrence: None)
  Receive Date: 20040630
  Receipt Date: 20040615
  Transmission Date: 20050107
  Serious: Yes (Hospitalization)
  Sender: FDA-Public Use
  Company Number: 173198

PATIENT
  Age: 52 Year
  Sex: Female

DRUGS (1)
  1. AVONEX [Suspect]
     Indication: MULTIPLE SCLEROSIS
     Dosage: 30 MCG QW IM
     Route: 030
     Dates: start: 20021221

REACTIONS (7)
  - DEPRESSION [None]
  - FATIGUE [None]
  - HEADACHE [None]
  - MYALGIA [None]
  - STAPHYLOCOCCAL ABSCESS [None]
  - SUICIDAL IDEATION [None]
  - THINKING ABNORMAL [None]
